FAERS Safety Report 6773955-8 (Version None)
Quarter: 2010Q2

REPORT INFORMATION
  Report Type: 
  Country: None (occurrence: None)
  Receive Date: 20100617
  Receipt Date: 20100615
  Transmission Date: 20101027
  Serious: Yes (Other)
  Sender: FDA-Public Use
  Company Number: US-ASTRAZENECA-2009UW17987

PATIENT
  Age: 474 Month
  Sex: Male
  Weight: 165.6 kg

DRUGS (6)
  1. SEROQUEL [Suspect]
     Indication: MENTAL DISORDER
     Route: 048
     Dates: start: 20050101, end: 20070101
  2. SEROQUEL [Suspect]
     Indication: PSYCHOTIC DISORDER
     Route: 048
     Dates: start: 20050101, end: 20070101
  3. SEROQUEL [Suspect]
     Route: 048
     Dates: start: 20070402
  4. SEROQUEL [Suspect]
     Route: 048
     Dates: start: 20070402
  5. ABILIFY [Concomitant]
  6. DIGOXIN [Concomitant]

REACTIONS (5)
  - DIABETIC NEUROPATHY [None]
  - HYPERTENSION [None]
  - IMPAIRED HEALING [None]
  - NEUROPATHY PERIPHERAL [None]
  - TYPE 2 DIABETES MELLITUS [None]
